FAERS Safety Report 4733071-3 (Version None)
Quarter: 2005Q3

REPORT INFORMATION
  Report Type: 
  Country: None (occurrence: None)
  Receive Date: 20050725
  Receipt Date: 20040720
  Transmission Date: 20060218
  Serious: Yes (Death)
  Sender: FDA-Public Use
  Company Number: USA-2004-0016134

PATIENT
  Age: 46 Year
  Sex: Male
  Weight: 89.3 kg

DRUGS (4)
  1. MORPHINE SULFATE [Suspect]
     Route: 065
  2. COCAINE (COCAINE) [Suspect]
     Route: 065
  3. DIAZEPAM [Suspect]
     Route: 065
  4. CAFFEINE (CAFFEINE) [Suspect]
     Route: 065

REACTIONS (2)
  - ACCIDENTAL OVERDOSE [None]
  - MULTIPLE DRUG OVERDOSE [None]
